FAERS Safety Report 8101569-6 (Version None)
Quarter: 2012Q1

REPORT INFORMATION
  Report Type: 
  Country: None (occurrence: None)
  Receive Date: 20120129
  Receipt Date: 20110918
  Transmission Date: 20120608
  Serious: No
  Sender: FDA-Public Use
  Company Number: US-ABBOTT-11P-163-0855954-00

PATIENT
  Age: 48 Year
  Sex: Female

DRUGS (9)
  1. CITALOPRAM [Concomitant]
     Indication: PRODUCT USED FOR UNKNOWN INDICATION
     Dosage: DAILY
  2. METHOTREXATE [Concomitant]
     Indication: PRODUCT USED FOR UNKNOWN INDICATION
     Dosage: 6 PILLS WEEKLY
  3. NITROFUR [Concomitant]
     Indication: PROPHYLAXIS
  4. AMLODIPINE [Concomitant]
     Indication: PRODUCT USED FOR UNKNOWN INDICATION
     Dosage: DAILY
  5. LISINOPRIL [Concomitant]
     Indication: PRODUCT USED FOR UNKNOWN INDICATION
     Dosage: DAILY
  6. FOLIC ACID [Concomitant]
     Indication: PRODUCT USED FOR UNKNOWN INDICATION
     Dosage: DAILY
  7. NITROFUR [Concomitant]
     Indication: CYSTITIS
     Dosage: AS NEEDED
  8. ALPRAZOLAM [Concomitant]
     Indication: ANXIETY
  9. HUMIRA [Suspect]
     Indication: RHEUMATOID ARTHRITIS
     Dates: start: 20110916

REACTIONS (4)
  - INFLUENZA [None]
  - FATIGUE [None]
  - MALAISE [None]
  - PAIN [None]
